FAERS Safety Report 16944407 (Version 1)
Quarter: 2019Q4

REPORT INFORMATION
  Report Type: Spontaneous
  Country: GB (occurrence: GB)
  Receive Date: 20191022
  Receipt Date: 20191022
  Transmission Date: 20200122
  Serious: Yes (Other)
  Sender: FDA-Public Use
  Company Number: GB-TEVA-2019-GB-1124481

PATIENT
  Age: 73 Year
  Sex: Male
  Weight: 85.72 kg

DRUGS (7)
  1. ATORVASTATIN [Concomitant]
     Active Substance: ATORVASTATIN
  2. CLARITHROMYCIN. [Suspect]
     Active Substance: CLARITHROMYCIN
     Indication: INFECTION
     Dosage: 1000 MG PER DAY
     Route: 048
     Dates: start: 20190920, end: 20190925
  3. AMITRIPTYLINE HYDROCHLORIDE. [Concomitant]
     Active Substance: AMITRIPTYLINE HYDROCHLORIDE
  4. GLICLAZIDE [Concomitant]
     Active Substance: GLICLAZIDE
  5. ACETYLSALICYLIC ACID [Concomitant]
     Active Substance: ASPIRIN
  6. SENNOSIDES. [Concomitant]
     Active Substance: SENNOSIDES
  7. LINAGLIPTIN [Concomitant]
     Active Substance: LINAGLIPTIN

REACTIONS (1)
  - Frequent bowel movements [Unknown]

NARRATIVE: CASE EVENT DATE: 20190920
